FAERS Safety Report 24058248 (Version 2)
Quarter: 2024Q3

REPORT INFORMATION
  Report Type: Report from Study
  Country: BR (occurrence: BR)
  Receive Date: 20240708
  Receipt Date: 20240813
  Transmission Date: 20241016
  Serious: Yes (Hospitalization, Other)
  Sender: ABBVIE
  Company Number: BR-ABBVIE-5825968

PATIENT
  Age: 56 Year
  Sex: Male
  Weight: 92 kg

DRUGS (1)
  1. SKYRIZI [Suspect]
     Active Substance: RISANKIZUMAB-RZAA
     Indication: Psoriasis
     Dosage: FREQUENCY: EVERY OTHER DAY
     Route: 058
     Dates: start: 20240205

REACTIONS (6)
  - Clavicle fracture [Recovering/Resolving]
  - Road traffic accident [Recovering/Resolving]
  - Decubitus ulcer [Recovering/Resolving]
  - Arthralgia [Recovering/Resolving]
  - Scratch [Recovered/Resolved]
  - Arthralgia [Recovered/Resolved]

NARRATIVE: CASE EVENT DATE: 20240520
